FAERS Safety Report 5124772-6 (Version None)
Quarter: 2006Q4

REPORT INFORMATION
  Report Type: 
  Country: None (occurrence: None)
  Receive Date: 20061011
  Receipt Date: 20060303
  Transmission Date: 20070319
  Serious: Yes (Other)
  Sender: FDA-Public Use
  Company Number: PHFR2006GB01052

PATIENT
  Age: 37 Year
  Sex: Female
  Weight: 88 kg

DRUGS (4)
  1. NEORAL [Suspect]
     Indication: PSORIASIS
     Dosage: 225MG/DAY
     Route: 048
  2. BETNOVATE [Concomitant]
     Route: 061
  3. CANESTEN-HC [Concomitant]
     Route: 061
  4. COCOIS [Concomitant]
     Route: 061

REACTIONS (3)
  - CAESAREAN SECTION [None]
  - DRUG EXPOSURE DURING PREGNANCY [None]
  - NORMAL NEWBORN [None]
